FAERS Safety Report 11043772 (Version 4)
Quarter: 2015Q3

REPORT INFORMATION
  Report Type: Spontaneous
  Country: JP (occurrence: JP)
  Receive Date: 20150417
  Receipt Date: 20150706
  Transmission Date: 20151125
  Serious: Yes (Other)
  Sender: FDA-Public Use
  Company Number: JP-JNJFOC-20150321104

PATIENT
  Age: 50 Year
  Sex: Male

DRUGS (6)
  1. MAGNESIUM OXIDE. [Concomitant]
     Active Substance: MAGNESIUM OXIDE
     Indication: CONSTIPATION
     Dosage: ONCE A DAY
     Route: 048
     Dates: start: 20120702
  2. MAGNESIUM OXIDE. [Concomitant]
     Active Substance: MAGNESIUM OXIDE
     Indication: CONSTIPATION
     Dosage: ONCE A DAY
     Route: 048
     Dates: end: 20150422
  3. TRAMCET [Suspect]
     Active Substance: ACETAMINOPHEN\TRAMADOL
     Indication: PAIN
     Dosage: 1 DOSE TWICE A DAY
     Route: 048
     Dates: start: 20150423
  4. KAKKONKAJUTSUBUTO [Concomitant]
     Indication: SPINAL OSTEOARTHRITIS
     Route: 048
     Dates: start: 20141224, end: 20150422
  5. TRAMCET [Suspect]
     Active Substance: ACETAMINOPHEN\TRAMADOL
     Indication: PAIN
     Dosage: 1 DOSE TWICE A DAY
     Route: 048
     Dates: start: 20120609, end: 20150422
  6. DAISAIKOTO [Concomitant]
     Active Substance: HERBALS
     Indication: CONSTIPATION
     Dosage: TWICE A DAY
     Route: 048
     Dates: start: 20141224, end: 20150422

REACTIONS (1)
  - Hyperkalaemia [Recovered/Resolved]

NARRATIVE: CASE EVENT DATE: 20150318
